FAERS Safety Report 6433697-5 (Version None)
Quarter: 2009Q4

REPORT INFORMATION
  Report Type: 
  Country: None (occurrence: None)
  Receive Date: 20091110
  Receipt Date: 20091029
  Transmission Date: 20100525
  Serious: Yes (Other)
  Sender: FDA-Public Use
  Company Number: US-ROCHE-665841

PATIENT
  Sex: Male
  Weight: 20.4 kg

DRUGS (1)
  1. TAMIFLU [Suspect]
     Indication: H1N1 INFLUENZA
     Dosage: RECEIVED FIVE DOSES.
     Route: 048
     Dates: start: 20091026, end: 20091028

REACTIONS (2)
  - ABNORMAL BEHAVIOUR [None]
  - CARDIAC MURMUR [None]
